FAERS Safety Report 10206748 (Version 1)
Quarter: 2014Q2

REPORT INFORMATION
  Report Type: Spontaneous
  Country: US (occurrence: None)
  Receive Date: 20140527
  Receipt Date: 20140527
  Transmission Date: 20141212
  Serious: Yes (Hospitalization, Other)
  Sender: FDA-Public Use
  Company Number: None

PATIENT
  Age: 56 Year
  Sex: Male
  Weight: 77 kg

DRUGS (20)
  1. MEGESTROL [Suspect]
     Indication: PRODUCT USED FOR UNKNOWN INDICATION
     Dosage: 5 ML (200MG) BID ORAL
     Route: 048
     Dates: start: 20131226, end: 20140515
  2. COUMADIN 5 MG [Suspect]
     Indication: ANTICOAGULANT THERAPY
     Dosage: 1 TABLET QD ORAL
     Route: 048
  3. VITAMIN D2 [Concomitant]
  4. DIGOXIN [Concomitant]
  5. FERROUS SULFATE [Concomitant]
  6. HYDROCODONE/ACETAMINOPHEN [Concomitant]
  7. SIMVASTATIN [Concomitant]
  8. WARFARIN [Concomitant]
  9. ACCUPRIL [Concomitant]
  10. B-COMPLEX-VITAMIN B12 [Concomitant]
  11. METOPROLOL TARTRATE [Concomitant]
  12. LORTAB [Concomitant]
  13. PREVACID [Concomitant]
  14. VENTOLIN HFA [Concomitant]
  15. VISTARIL [Concomitant]
  16. VITAMIN B12-FOLIC ACID [Concomitant]
  17. ALBUTEROL [Concomitant]
  18. ASPIRIN [Concomitant]
  19. CARVEDILOL [Concomitant]
  20. ZOLPIDEM [Concomitant]

REACTIONS (2)
  - Cerebrovascular accident [None]
  - Intracardiac thrombus [None]
